FAERS Safety Report 9732554 (Version 2)
Quarter: 2013Q4

REPORT INFORMATION
  Report Type: Spontaneous
  Country: US (occurrence: US)
  Receive Date: 20131205
  Receipt Date: 20131230
  Transmission Date: 20140711
  Serious: No
  Sender: FDA-Public Use
  Company Number: US-PFIZER INC-2013347438

PATIENT
  Sex: Female

DRUGS (2)
  1. PRISTIQ [Suspect]
     Indication: DEPRESSION
     Dosage: 50 MG, DAILY (1 TABLET A DAY)
     Dates: start: 20130606, end: 201307
  2. PRISTIQ [Suspect]
     Indication: ANXIETY
     Dosage: 100 MG, DAILY (2 PILLS A DAY)
     Dates: start: 201307, end: 2013

REACTIONS (4)
  - Drug ineffective [Unknown]
  - Drug ineffective for unapproved indication [Unknown]
  - Off label use [Unknown]
  - Tremor [Unknown]
